FAERS Safety Report 5062474-5 (Version None)
Quarter: 2006Q3

REPORT INFORMATION
  Report Type: 
  Country: None (occurrence: None)
  Receive Date: 20060726
  Receipt Date: 20060704
  Transmission Date: 20061208
  Serious: Yes (Hospitalization)
  Sender: FDA-Public Use
  Company Number: JP-ABBOTT-06P-087-0337494-00

PATIENT
  Sex: Female
  Weight: 42 kg

DRUGS (5)
  1. KLARICID [Suspect]
     Indication: HYPERSENSITIVITY
     Route: 048
     Dates: start: 20060630, end: 20060703
  2. BETAMETHASONE/D-CHLORPHENIRAMINE MALEATE [Suspect]
     Indication: HYPERSENSITIVITY
     Route: 048
     Dates: start: 20060630, end: 20060703
  3. LORATADINE [Suspect]
     Indication: HYPERSENSITIVITY
     Route: 048
     Dates: start: 20060630, end: 20060703
  4. LORATADINE [Suspect]
  5. VITAMIN CAP [Concomitant]
     Indication: HYPERSENSITIVITY
     Route: 048
     Dates: start: 20060630, end: 20060703

REACTIONS (2)
  - CONVULSION [None]
  - ELECTROENCEPHALOGRAM ABNORMAL [None]
